FAERS Safety Report 8880135 (Version 3)
Quarter: 2013Q1

REPORT INFORMATION
  Report Type: Spontaneous
  Country: FR (occurrence: FR)
  Receive Date: 20121101
  Receipt Date: 20130226
  Transmission Date: 20140127
  Serious: Yes (Congenital Anomaly)
  Sender: FDA-Public Use
  Company Number: FR-UCBSA-069890

PATIENT
  Sex: Female

DRUGS (2)
  1. KEPPRA [Suspect]
     Indication: JUVENILE MYOCLONIC EPILEPSY
     Dosage: DAILY DOSE: 1G
     Route: 064
     Dates: start: 20120420, end: 20130111
  2. SPECIAFOLDINE [Concomitant]
     Route: 064

REACTIONS (2)
  - Congenital aortic anomaly [Not Recovered/Not Resolved]
  - Foetal exposure during pregnancy [Recovered/Resolved]
